FAERS Safety Report 5708424-7 (Version None)
Quarter: 2008Q2

REPORT INFORMATION
  Report Type: 
  Country: None (occurrence: None)
  Receive Date: 20080417
  Receipt Date: 20080408
  Transmission Date: 20081010
  Serious: Yes (Death)
  Sender: FDA-Public Use
  Company Number: US-PFIZER INC-2005173435

PATIENT
  Sex: Female
  Weight: 83.3 kg

DRUGS (10)
  1. SUTENT [Suspect]
     Indication: GASTROINTESTINAL STROMAL TUMOUR
     Route: 048
     Dates: start: 20051018, end: 20051224
  2. NORVASC [Concomitant]
     Route: 048
  3. TOPROL-XL [Concomitant]
     Route: 048
  4. K-DUR [Concomitant]
     Route: 048
  5. COUMADIN [Concomitant]
     Route: 048
  6. HYDROCHLOROTHIAZIDE [Concomitant]
     Route: 048
  7. DIFLUCAN [Concomitant]
     Route: 048
  8. LANOXIN [Concomitant]
     Route: 048
  9. POTASSIUM CHLORIDE [Concomitant]
     Route: 048
  10. VITAMIN K TAB [Concomitant]
     Route: 048

REACTIONS (1)
  - UROSEPSIS [None]
